FAERS Safety Report 22206920 (Version 1)
Quarter: 2023Q2

REPORT INFORMATION
  Report Type: Report from Study
  Country: TW (occurrence: TW)
  Receive Date: 20230413
  Receipt Date: 20230413
  Transmission Date: 20230722
  Serious: Yes (Other)
  Sender: FDA-Public Use
  Company Number: TW-002147023-NVSC2023TW083113

PATIENT
  Age: 41 Year
  Sex: Male
  Weight: 81 kg

DRUGS (3)
  1. COSENTYX [Suspect]
     Active Substance: SECUKINUMAB
     Indication: Ankylosing spondylitis
     Dosage: 150 MG, QMO (Q4W)
     Route: 058
  2. CELECOXIB [Suspect]
     Active Substance: CELECOXIB
     Indication: Product used for unknown indication
     Dosage: UNK
     Route: 065
  3. SULFASALAZINE [Concomitant]
     Active Substance: SULFASALAZINE
     Indication: Product used for unknown indication
     Dosage: 1000 MG, BID
     Route: 048

REACTIONS (16)
  - Tricuspid valve disease [Unknown]
  - Panniculitis [Unknown]
  - Coronary artery disease [Unknown]
  - Skin lesion [Unknown]
  - Rash papular [Unknown]
  - Tenderness [Unknown]
  - Skin hyperpigmentation [Unknown]
  - Microcytic anaemia [Unknown]
  - Iron deficiency anaemia [Unknown]
  - Haematocrit increased [Unknown]
  - Red cell distribution width abnormal [Unknown]
  - Red blood cell sedimentation rate abnormal [Unknown]
  - Mean cell haemoglobin increased [Unknown]
  - Haemoglobin abnormal [Unknown]
  - Arthralgia [Unknown]
  - Urticaria [Recovered/Resolved]

NARRATIVE: CASE EVENT DATE: 20230103
